FAERS Safety Report 19382126 (Version 7)
Quarter: 2024Q1

REPORT INFORMATION
  Report Type: Spontaneous
  Country: US (occurrence: US)
  Receive Date: 20210607
  Receipt Date: 20240103
  Transmission Date: 20240410
  Serious: Yes (Other)
  Sender: FDA-Public Use
  Company Number: US-PFIZER INC-2021449143

PATIENT
  Age: 72 Year
  Sex: Female
  Weight: 72.8 kg

DRUGS (3)
  1. IBRANCE [Suspect]
     Active Substance: PALBOCICLIB
     Indication: Breast cancer metastatic
     Dosage: 100 MG
  2. IBRANCE [Suspect]
     Active Substance: PALBOCICLIB
     Dosage: 75 MG, CYCLIC TAKE 1 TAB PO DAILY. TAKE 1-21 DAYS 7 DAYS OFF EVERY 28 DAYS CYCLE
     Route: 048
  3. TESSALON [Concomitant]
     Active Substance: BENZONATATE
     Indication: Cough
     Dosage: 200 MG, AS NEEDED (TAKE 1 CAPSULE (200 MG) BY MOUTH 3 TIMES DAILY AS NEEDED)
     Route: 048

REACTIONS (3)
  - Blindness unilateral [Unknown]
  - Neutrophil count decreased [Unknown]
  - White blood cell count decreased [Unknown]
